FAERS Safety Report 9848998 (Version 2)
Quarter: 2014Q1

REPORT INFORMATION
  Report Type: Spontaneous
  Country: US (occurrence: US)
  Receive Date: 20140128
  Receipt Date: 20140220
  Transmission Date: 20141002
  Serious: No
  Sender: FDA-Public Use
  Company Number: US-B.I. PHARMACEUTICALS,INC./RIDGEFIELD-2014-BI-02000BP

PATIENT
  Age: 77 Year
  Sex: Female
  Weight: 86 kg

DRUGS (5)
  1. PRADAXA [Suspect]
     Indication: ATRIAL FIBRILLATION
     Dosage: 300 MG
     Route: 048
     Dates: start: 20130912
  2. LISINOPRIL [Concomitant]
     Indication: HYPERTENSION
     Route: 048
  3. VYTORIN [Concomitant]
     Indication: HYPERLIPIDAEMIA
     Dosage: DOSE PER APPLICATION: 10/40
     Route: 048
  4. ACTONEL [Concomitant]
     Indication: OSTEOPOROSIS
     Route: 048
  5. SOTALOL [Concomitant]
     Dosage: 160 MG
     Route: 048
     Dates: start: 201309

REACTIONS (2)
  - Alopecia [Not Recovered/Not Resolved]
  - Pruritus generalised [Not Recovered/Not Resolved]
